FAERS Safety Report 17252853 (Version 2)
Quarter: 2020Q1

REPORT INFORMATION
  Report Type: Spontaneous
  Country: PL (occurrence: PL)
  Receive Date: 20200109
  Receipt Date: 20200122
  Transmission Date: 20200409
  Serious: No
  Sender: FDA-Public Use
  Company Number: PL-BAXTER-2019BAX026864

PATIENT
  Sex: Male

DRUGS (6)
  1. ETOPOSIDE. [Suspect]
     Active Substance: ETOPOSIDE
     Indication: PRIMITIVE NEUROECTODERMAL TUMOUR
     Dosage: NEOADJUVANT CHEMOTHERAPY?4 COURSES
     Route: 065
     Dates: start: 201508
  2. VINCRISTINE [Suspect]
     Active Substance: VINCRISTINE
     Indication: PRIMITIVE NEUROECTODERMAL TUMOUR
     Dosage: NEOADJUVANT CHEMOTHERAPY?4 COURSES
     Route: 065
     Dates: start: 201508
  3. DACTINOMYCIN [Suspect]
     Active Substance: DACTINOMYCIN
     Indication: PRIMITIVE NEUROECTODERMAL TUMOUR
     Dosage: NEOADJUVANT CHEMOTHERAPY?4 COURSES
     Route: 065
     Dates: start: 201508
  4. ENDOXAN [Suspect]
     Active Substance: CYCLOPHOSPHAMIDE
     Indication: PRIMITIVE NEUROECTODERMAL TUMOUR
     Dosage: NEOADJUVANT CHEMOTHERAPY?4 COURSES
     Route: 065
     Dates: start: 201508
  5. HOLOXAN [Suspect]
     Active Substance: IFOSFAMIDE
     Indication: PRIMITIVE NEUROECTODERMAL TUMOUR
     Dosage: NEOADJUVANT CHEMOTHERAPY?4 COURSES
     Route: 065
     Dates: start: 201508
  6. DOXORUBICIN [Suspect]
     Active Substance: DOXORUBICIN
     Indication: PRIMITIVE NEUROECTODERMAL TUMOUR
     Dosage: NEOADJUVANT CHEMOTHERAPY?4 COURSES
     Route: 065
     Dates: start: 201508

REACTIONS (1)
  - Therapy partial responder [Unknown]
